FAERS Safety Report 21401835 (Version 1)
Quarter: 2022Q4

REPORT INFORMATION
  Report Type: Report from Study
  Country: US (occurrence: US)
  Receive Date: 20221003
  Receipt Date: 20221003
  Transmission Date: 20230112
  Serious: Yes (Hospitalization, Other)
  Sender: FDA-Public Use
  Company Number: US-CELGENE-USA-20200200498

PATIENT
  Age: 66 Year
  Sex: Female

DRUGS (54)
  1. PACLITAXEL [Suspect]
     Active Substance: PACLITAXEL
     Indication: Triple negative breast cancer
     Dosage: 255 MG, 1 IN 1 D
     Route: 042
     Dates: start: 20190828
  2. PACLITAXEL [Suspect]
     Active Substance: PACLITAXEL
     Dosage: 251.25 MG 1 IN 1 D
     Route: 042
     Dates: start: 20191106
  3. ATEZOLIZUMAB [Suspect]
     Active Substance: ATEZOLIZUMAB
     Indication: Triple negative breast cancer
     Route: 042
     Dates: start: 20190828
  4. ATEZOLIZUMAB [Suspect]
     Active Substance: ATEZOLIZUMAB
     Route: 042
     Dates: start: 20191224
  5. ATEZOLIZUMAB [Suspect]
     Active Substance: ATEZOLIZUMAB
     Route: 042
     Dates: start: 20200108
  6. ATEZOLIZUMAB [Suspect]
     Active Substance: ATEZOLIZUMAB
     Route: 042
     Dates: start: 20200116
  7. ATEZOLIZUMAB [Suspect]
     Active Substance: ATEZOLIZUMAB
     Route: 042
     Dates: start: 20200124
  8. DOXORUBICIN [Suspect]
     Active Substance: DOXORUBICIN
     Indication: Triple negative breast cancer
     Dosage: 120 MG 1 IN 2 WEEKS
     Route: 042
     Dates: start: 20191126
  9. DOXORUBICIN [Suspect]
     Active Substance: DOXORUBICIN
     Dosage: 115 MG 1 IN 2 WEEKS
     Route: 042
     Dates: start: 20191224
  10. CYCLOPHOSPHAMIDE [Suspect]
     Active Substance: CYCLOPHOSPHAMIDE
     Indication: Triple negative breast cancer
     Dosage: 1205 MG 1 IN 2 WEEKS
     Route: 042
     Dates: start: 20191126
  11. CYCLOPHOSPHAMIDE [Suspect]
     Active Substance: CYCLOPHOSPHAMIDE
     Dosage: 1130 MG 1 IN 2 WEEKS @15:38
     Route: 042
  12. CYCLOPHOSPHAMIDE [Suspect]
     Active Substance: CYCLOPHOSPHAMIDE
     Dosage: 1130 MG 1 IN 2 WEEKS @14:38
     Route: 042
     Dates: start: 20191224
  13. CALCIUM CARBONATE;MAGNESIUM [Concomitant]
     Indication: Hypercalcaemia
     Route: 048
  14. ERGOCALCIFEROL [Concomitant]
     Active Substance: ERGOCALCIFEROL
     Indication: Product used for unknown indication
     Dosage: 1.25 MILLIGRAM
     Route: 048
  15. ERGOCALCIFEROL [Concomitant]
     Active Substance: ERGOCALCIFEROL
     Dosage: 50000 IU (INTERNATIONAL UNIT)
     Route: 048
  16. CALCIUM CARBONATE [Concomitant]
     Active Substance: CALCIUM CARBONATE
     Indication: Product used for unknown indication
     Dosage: 2500 MILLIGRAM
     Route: 048
     Dates: start: 20200117
  17. POTASSIUM CHLORIDE [Concomitant]
     Active Substance: POTASSIUM CHLORIDE
     Indication: Product used for unknown indication
     Dosage: 2 DOSAGE FORMS
     Route: 048
  18. ATORVASTATIN [Concomitant]
     Active Substance: ATORVASTATIN
     Indication: Hypercholesterolaemia
     Dosage: 10 MILLIGRAM
     Route: 048
     Dates: start: 20190502
  19. DEXAMETHASONE [Concomitant]
     Active Substance: DEXAMETHASONE
     Indication: Product used for unknown indication
     Dosage: FREQUENCY TEXT: NOT PROVIDED?4 MILLIGRAM
     Route: 048
  20. PYRIDOXINE [Concomitant]
     Active Substance: PYRIDOXINE
     Indication: Product used for unknown indication
     Dosage: 1 DOSAGE FORMS
     Route: 048
  21. ZINC ACETATE [Concomitant]
     Active Substance: ZINC ACETATE
     Indication: Neuropathy peripheral
     Dosage: 150 MILLIGRAM
     Route: 048
     Dates: start: 20191106
  22. ZINC ACETATE [Concomitant]
     Active Substance: ZINC ACETATE
     Dosage: 50 MILLIGRAM
     Route: 048
     Dates: start: 20191106
  23. HYDROCHLOROTHIAZIDE [Concomitant]
     Active Substance: HYDROCHLOROTHIAZIDE
     Indication: Hypertension
     Dosage: 25 MILLIGRAM
     Route: 048
     Dates: start: 20190502
  24. ONDANSETRON [Concomitant]
     Active Substance: ONDANSETRON
     Indication: Nausea
     Dosage: FREQUENCY TEXT: NOT PROVIDED?10 MILLIGRAM
     Route: 042
     Dates: start: 20190828
  25. ONDANSETRON [Concomitant]
     Active Substance: ONDANSETRON
     Indication: Prophylaxis
     Dosage: FREQUENCY TEXT: PRN?8 MILLIGRAM
     Route: 042
     Dates: start: 20190828
  26. FAMOTIDINE [Concomitant]
     Active Substance: FAMOTIDINE
     Indication: Dyspepsia
     Dosage: FREQUENCY TEXT: NOT PROVIDED?20 MILLIGRAM
     Route: 042
     Dates: start: 20190828
  27. FAMOTIDINE [Concomitant]
     Active Substance: FAMOTIDINE
     Indication: Prophylaxis
  28. DIPHENHYDRAMINE [Concomitant]
     Active Substance: DIPHENHYDRAMINE
     Indication: Prophylaxis
     Dosage: 25 MILLIGRAM
     Route: 042
     Dates: start: 20190828
  29. PROCHLORPERAZINE [Concomitant]
     Active Substance: PROCHLORPERAZINE
     Indication: Nausea
     Dosage: FREQUENCY TEXT: PRN
     Route: 042
     Dates: start: 20190828
  30. PROCHLORPERAZINE [Concomitant]
     Active Substance: PROCHLORPERAZINE
     Indication: Vomiting
  31. PYRIDOXINE HYDROCHLORIDE [Concomitant]
     Active Substance: PYRIDOXINE HYDROCHLORIDE
     Indication: Neuropathy peripheral
     Route: 042
     Dates: start: 20191106
  32. ZINC [Concomitant]
     Active Substance: ZINC
     Indication: Neuropathy peripheral
     Dosage: 50 MILLIGRAM
     Route: 042
     Dates: start: 20191106
  33. MAGNESIUM CITRATE [Concomitant]
     Active Substance: MAGNESIUM CITRATE
     Indication: Constipation
     Route: 048
     Dates: start: 20191113, end: 20191113
  34. PANTOPRAZOLE [Concomitant]
     Active Substance: PANTOPRAZOLE
     Indication: Prophylaxis
     Dosage: 40 MILLIGRAM
     Route: 042
     Dates: start: 20191110, end: 20191110
  35. LIDOCAINE [Concomitant]
     Active Substance: LIDOCAINE
     Indication: Back pain
     Dosage: 200 MILLIGRAM
     Route: 061
     Dates: start: 20191110, end: 20191110
  36. LACTULOSE [Concomitant]
     Active Substance: LACTULOSE
     Indication: Constipation
     Dosage: 30 MILLILITER
     Route: 048
     Dates: start: 20191113
  37. METHYLPREDNISOLONE [Concomitant]
     Active Substance: METHYLPREDNISOLONE
     Indication: Asthenia
     Dosage: 4 MILLIGRAM
     Route: 048
     Dates: start: 20191120, end: 20191125
  38. METHYLPREDNISOLONE [Concomitant]
     Active Substance: METHYLPREDNISOLONE
     Indication: Balance disorder
  39. APREPITANT [Concomitant]
     Active Substance: APREPITANT
     Indication: Prophylaxis
     Dosage: 130 MILLIGRAM
     Route: 042
     Dates: start: 20191126
  40. PALONOSETRON HYDROCHLORIDE [Concomitant]
     Active Substance: PALONOSETRON HYDROCHLORIDE
     Indication: Prophylaxis
     Dosage: .25 MILLIGRAM
     Route: 042
     Dates: start: 20191128
  41. DICYCLOMINE [Concomitant]
     Active Substance: DICYCLOMINE HYDROCHLORIDE
     Indication: Abdominal distension
     Dosage: FREQUENCY TEXT: PRN?2 DOSAGE FORMS
     Route: 048
     Dates: start: 20191123
  42. DICYCLOMINE [Concomitant]
     Active Substance: DICYCLOMINE HYDROCHLORIDE
     Dosage: FREQUENCY TEXT: PRN?2 DOSAGE FORMS
     Route: 048
     Dates: start: 20191126
  43. SODIUM CHLORIDE [Concomitant]
     Active Substance: SODIUM CHLORIDE
     Indication: Tachycardia
     Dosage: FREQUENCY TEXT: PRN?500 MILLILITER
     Route: 042
     Dates: start: 20191204
  44. SODIUM CHLORIDE [Concomitant]
     Active Substance: SODIUM CHLORIDE
     Indication: Dehydration
     Dosage: FREQUENCY TEXT: NOT PROVIDED?1000 MILLILITER
     Route: 042
     Dates: start: 20200116, end: 20200116
  45. CALCIUM GLUCONATE [Concomitant]
     Active Substance: CALCIUM GLUCONATE
     Indication: Blood calcium decreased
     Dosage: 20 MILLILITER
     Route: 042
     Dates: start: 20200102, end: 20200102
  46. CALCIUM GLUCONATE [Concomitant]
     Active Substance: CALCIUM GLUCONATE
     Indication: Hypocalcaemia
     Dosage: 1 OTHER
     Route: 042
     Dates: start: 20200117, end: 20200118
  47. NYSTATIN [Concomitant]
     Active Substance: NYSTATIN
     Indication: Oral candidiasis
     Dosage: 5 MILLILITER
     Route: 048
     Dates: start: 20191204
  48. POTASSIUM PHOSPHATE, MONOBASIC [Concomitant]
     Active Substance: POTASSIUM PHOSPHATE, MONOBASIC
     Indication: Product used for unknown indication
     Route: 065
  49. VANCOMYCIN [Concomitant]
     Active Substance: VANCOMYCIN
     Indication: Infection
     Dosage: FREQUENCY TEXT: NOT PROVIDED?1 OTHER
     Route: 042
     Dates: start: 20200120, end: 20200120
  50. VANCOMYCIN [Concomitant]
     Active Substance: VANCOMYCIN
     Route: 042
     Dates: start: 20200126, end: 20200127
  51. MAGNESIUM SULFATE [Concomitant]
     Active Substance: MAGNESIUM SULFATE
     Indication: Hypomagnesaemia
     Dosage: FREQUENCY TEXT: NOT PROVIDED?1 OTHER
     Route: 042
     Dates: start: 20200116, end: 20200119
  52. MAGNESIUM SULFATE [Concomitant]
     Active Substance: MAGNESIUM SULFATE
     Dosage: FREQUENCY TEXT: NOT PROVIDED
     Route: 042
     Dates: start: 20200127, end: 20200127
  53. CEFEPIME [Concomitant]
     Active Substance: CEFEPIME HYDROCHLORIDE
     Indication: Bacillus bacteraemia
     Dosage: FREQUENCY TEXT: NOT PROVIDED?2000 MILLIGRAM
     Route: 042
     Dates: start: 20200126, end: 20200126
  54. ENOXAPARIN [Concomitant]
     Active Substance: ENOXAPARIN
     Indication: Product used for unknown indication
     Dosage: FREQUENCY TEXT: NOT PROVIDED?40 MILLIGRAM
     Route: 058
     Dates: start: 20200126, end: 20200126

REACTIONS (4)
  - Vitamin D deficiency [Recovered/Resolved]
  - Anaemia [Not Recovered/Not Resolved]
  - Neutropenia [Recovered/Resolved]
  - Dehydration [Recovered/Resolved]

NARRATIVE: CASE EVENT DATE: 20200102
